FAERS Safety Report 8927575 (Version 4)
Quarter: 2013Q2

REPORT INFORMATION
  Report Type: Report from Study
  Country: IL (occurrence: IL)
  Receive Date: 20121127
  Receipt Date: 20130506
  Transmission Date: 20140414
  Serious: Yes (Hospitalization, Other)
  Sender: FDA-Public Use
  Company Number: IL-ASTELLAS-2012US011409

PATIENT
  Age: 78 Year
  Sex: Female
  Weight: 55 kg

DRUGS (15)
  1. ERLOTINIB TABLET [Suspect]
     Indication: PANCREATIC CARCINOMA
     Dosage: 100 MG, UID/QD
     Route: 048
     Dates: start: 20120905, end: 20121023
  2. ERLOTINIB TABLET [Suspect]
     Dosage: 100 MG, UID/QD
     Route: 048
     Dates: start: 20121104
  3. GEMCITABINE /01215702/ [Suspect]
     Indication: PANCREATIC CARCINOMA
     Dosage: CYCLE 1: DAYS 1, 8, 15, 22, 29, 36, 43 AND DAY 1, 8 + 15 IN CYCLES 2 + BEYOND
     Route: 042
     Dates: start: 20120905, end: 20121023
  4. GEMCITABINE /01215702/ [Suspect]
     Dosage: UNK
     Route: 042
     Dates: start: 20121104
  5. UNSPECIFIED TRADITIONAL MEDICINE [Suspect]
     Indication: PRODUCT USED FOR UNKNOWN INDICATION
     Dosage: UNK
     Route: 065
     Dates: start: 20120905, end: 20121023
  6. UNSPECIFIED TRADITIONAL MEDICINE [Suspect]
     Dosage: UNK
     Route: 065
     Dates: start: 20121104
  7. OMEPRAZOLE [Concomitant]
     Indication: PRODUCT USED FOR UNKNOWN INDICATION
     Dosage: UNK
     Route: 065
     Dates: start: 20120726
  8. ENALAPRIL [Concomitant]
     Indication: PRODUCT USED FOR UNKNOWN INDICATION
     Dosage: UNK
     Route: 065
  9. BROTIZOLAM [Concomitant]
     Indication: PRODUCT USED FOR UNKNOWN INDICATION
     Dosage: UNK
     Route: 065
     Dates: start: 2012
  10. OXYCODONE [Concomitant]
     Indication: PRODUCT USED FOR UNKNOWN INDICATION
     Dosage: UNK
     Route: 065
     Dates: start: 20120822
  11. DIPYRONE [Concomitant]
     Indication: PRODUCT USED FOR UNKNOWN INDICATION
     Dosage: UNK
     Route: 065
     Dates: start: 20120715
  12. LACTULOSE [Concomitant]
     Indication: PRODUCT USED FOR UNKNOWN INDICATION
     Dosage: UNK
     Route: 065
     Dates: start: 201207
  13. VITAMIN D3 [Concomitant]
     Indication: PRODUCT USED FOR UNKNOWN INDICATION
     Dosage: UNK
     Route: 065
     Dates: start: 20120901
  14. ESCITALOPRAM [Concomitant]
     Indication: PRODUCT USED FOR UNKNOWN INDICATION
     Dosage: UNK
     Route: 065
     Dates: start: 20120805
  15. DEXAMETHASONE [Concomitant]
     Indication: OEDEMA PERIPHERAL
     Dosage: UNK
     Route: 065

REACTIONS (3)
  - Pulmonary embolism [Unknown]
  - Anaemia [Unknown]
  - Deep vein thrombosis [Unknown]
